FAERS Safety Report 5908915-X (Version None)
Quarter: 2008Q4

REPORT INFORMATION
  Report Type: 
  Country: None (occurrence: None)
  Receive Date: 20081006
  Receipt Date: 20080924
  Transmission Date: 20090506
  Serious: Yes (Hospitalization)
  Sender: FDA-Public Use
  Company Number: FR-MERCK-0804FRA00027

PATIENT
  Age: 78 Year
  Sex: Female

DRUGS (8)
  1. HYZAAR [Suspect]
     Indication: HYPERTENSION
     Route: 048
     Dates: start: 20050301, end: 20080327
  2. ACETAMINOPHEN AND PROPOXYPHENE HYDROCHLORIDE [Concomitant]
     Route: 048
  3. ACEBUTOLOL HYDROCHLORIDE [Concomitant]
     Route: 048
  4. FLECAINIDE ACETATE [Concomitant]
     Indication: ARRHYTHMIA
     Route: 048
  5. BETAHISTINE HYDROCHLORIDE [Concomitant]
     Indication: MENIERE'S DISEASE
     Route: 048
  6. OXAZEPAM [Concomitant]
     Indication: ANXIETY
     Route: 048
  7. PINAVERIUM BROMIDE [Concomitant]
     Indication: INTESTINAL FUNCTIONAL DISORDER
     Route: 048
  8. POLYETHYLENE GLYCOL 3350 AND POTASSIUM CHLORIDE AND SODIUM BICARBONATE [Concomitant]
     Indication: CONSTIPATION
     Route: 048

REACTIONS (2)
  - COMA [None]
  - HYPONATRAEMIA [None]
